FAERS Safety Report 5378276-6 (Version None)
Quarter: 2007Q3

REPORT INFORMATION
  Report Type: 
  Country: None (occurrence: None)
  Receive Date: 20070705
  Receipt Date: 20070626
  Transmission Date: 20080115
  Serious: Yes (Death, Other)
  Sender: FDA-Public Use
  Company Number: JP-BAYER-200710427BYL

PATIENT
  Age: 70 Year
  Sex: Male
  Weight: 60 kg

DRUGS (57)
  1. ASPIRIN [Suspect]
     Indication: CEREBROVASCULAR ACCIDENT PROPHYLAXIS
     Dosage: TOTAL DAILY DOSE: 100 MG  UNIT DOSE: 100 MG
     Route: 048
     Dates: start: 20060830, end: 20060930
  2. MAGMITT [Suspect]
     Indication: CONSTIPATION
     Dosage: TOTAL DAILY DOSE: 990 MG  UNIT DOSE: 330 MG
     Route: 048
     Dates: start: 20060829, end: 20060926
  3. CERCINE [Suspect]
     Indication: CONVULSION PROPHYLAXIS
     Dosage: TOTAL DAILY DOSE: 2 MG  UNIT DOSE: 2 MG
     Route: 048
     Dates: start: 20060924, end: 20060926
  4. PHENOBARBITAL TAB [Suspect]
     Indication: CONVULSION PROPHYLAXIS
     Dosage: TOTAL DAILY DOSE: 100 MG  UNIT DOSE: 100 MG
     Route: 048
     Dates: start: 20060828, end: 20060923
  5. AMOBAN [Suspect]
     Indication: INSOMNIA
     Dosage: TOTAL DAILY DOSE: 7.5 MG  UNIT DOSE: 7.5 MG
     Route: 048
     Dates: start: 20060920, end: 20060920
  6. AMOBAN [Suspect]
     Dosage: TOTAL DAILY DOSE: 7.5 MG  UNIT DOSE: 7.5 MG
     Route: 048
     Dates: start: 20060922, end: 20060923
  7. AMOBAN [Suspect]
     Dosage: TOTAL DAILY DOSE: 7.5 MG  UNIT DOSE: 7.5 MG
     Route: 048
     Dates: start: 20060925, end: 20060925
  8. ROHYPNOL [Suspect]
     Indication: INSOMNIA
     Dosage: TOTAL DAILY DOSE: 1 MG  UNIT DOSE: 1 MG
     Route: 048
     Dates: start: 20060918, end: 20060919
  9. ROHYPNOL [Suspect]
     Dosage: TOTAL DAILY DOSE: 1 MG  UNIT DOSE: 1 MG
     Route: 048
     Dates: start: 20060923, end: 20060926
  10. ROHYPNOL [Suspect]
     Dosage: TOTAL DAILY DOSE: 1 MG  UNIT DOSE: 1 MG
     Route: 048
     Dates: start: 20060913, end: 20060915
  11. ROHYPNOL [Suspect]
     Dosage: TOTAL DAILY DOSE: 1 MG  UNIT DOSE: 1 MG
     Route: 048
     Dates: start: 20060921, end: 20060921
  12. UBRETID [Suspect]
     Indication: NEUROGENIC BLADDER
     Dosage: TOTAL DAILY DOSE: 10 MG  UNIT DOSE: 5 MG
     Route: 048
     Dates: start: 20060908, end: 20060929
  13. SPELEAR [Suspect]
     Indication: SPUTUM RETENTION
     Dosage: TOTAL DAILY DOSE: 1200 MG  UNIT DOSE: 200 MG
     Dates: start: 20060914, end: 20060924
  14. TAKEPRON [Suspect]
     Indication: GASTRIC ULCER
     Dosage: TOTAL DAILY DOSE: 30 MG  UNIT DOSE: 15 MG
     Route: 048
     Dates: start: 20060824, end: 20060824
  15. TAKEPRON [Suspect]
     Dosage: TOTAL DAILY DOSE: 30 MG  UNIT DOSE: 15 MG
     Route: 048
     Dates: start: 20060906, end: 20060929
  16. NAPROXEN [Suspect]
     Indication: PYREXIA
     Dosage: TOTAL DAILY DOSE: 300 MG  UNIT DOSE: 100 MG
     Route: 048
     Dates: start: 20060920, end: 20060926
  17. LOXONIN [Suspect]
     Indication: INTERCOSTAL NEURALGIA
     Dosage: TOTAL DAILY DOSE: 180 MG  UNIT DOSE: 60 MG
     Route: 048
     Dates: start: 20060923, end: 20060924
  18. LOXONIN [Suspect]
     Dosage: TOTAL DAILY DOSE: 180 MG  UNIT DOSE: 60 MG
     Route: 048
     Dates: start: 20060918, end: 20060920
  19. VOLTAREN [Suspect]
     Indication: WOUND COMPLICATION
     Dosage: TOTAL DAILY DOSE: 25 MG  UNIT DOSE: 25 MG
     Route: 054
     Dates: start: 20060824, end: 20060824
  20. VOLTAREN [Suspect]
     Dosage: TOTAL DAILY DOSE: 50 MG  UNIT DOSE: 50 MG
     Route: 054
     Dates: start: 20060920, end: 20060922
  21. VOLTAREN [Suspect]
     Dosage: TOTAL DAILY DOSE: 50 MG  UNIT DOSE: 50 MG
     Route: 054
     Dates: start: 20060917, end: 20060917
  22. VOLTAREN [Suspect]
     Dosage: TOTAL DAILY DOSE: 25 MG  UNIT DOSE: 25 MG
     Route: 054
     Dates: start: 20060904, end: 20060923
  23. WAKOBITAL [Suspect]
     Indication: CONVULSION PROPHYLAXIS
     Dosage: TOTAL DAILY DOSE: 200 MG  UNIT DOSE: 100 MG
     Route: 054
     Dates: start: 20060825, end: 20060828
  24. POTACOL-R [Suspect]
     Indication: FLUID REPLACEMENT
     Dosage: TOTAL DAILY DOSE: 500 ML  UNIT DOSE: 500 ML
     Route: 042
     Dates: start: 20060824, end: 20060824
  25. POTACOL-R [Suspect]
     Dosage: TOTAL DAILY DOSE: 500 ML  UNIT DOSE: 500 ML
     Route: 042
     Dates: start: 20060831, end: 20060911
  26. RADICUT [Suspect]
     Indication: CEREBRAL INFARCTION
     Dosage: TOTAL DAILY DOSE: 60 MG  UNIT DOSE: 30 MG
     Route: 042
     Dates: start: 20060824, end: 20060903
  27. ZOLPIDEM [Suspect]
     Indication: INSOMNIA
     Dosage: TOTAL DAILY DOSE: 5 MG  UNIT DOSE: 5 MG
     Route: 048
     Dates: start: 20060822, end: 20060822
  28. ZOLPIDEM [Suspect]
     Dosage: TOTAL DAILY DOSE: 5 MG  UNIT DOSE: 5 MG
     Route: 048
     Dates: start: 20060923, end: 20060923
  29. ZOLPIDEM [Suspect]
     Dosage: TOTAL DAILY DOSE: 5 MG  UNIT DOSE: 5 MG
     Route: 048
     Dates: start: 20060831, end: 20060831
  30. TEGRETOL [Suspect]
     Indication: WOUND COMPLICATION
     Dosage: TOTAL DAILY DOSE: 100 MG  UNIT DOSE: 100 MG
     Route: 048
     Dates: start: 20060922, end: 20060923
  31. FLUMARIN [Suspect]
     Indication: INFECTION
     Dosage: TOTAL DAILY DOSE: 2  G  UNIT DOSE: 1 G
     Route: 042
     Dates: start: 20060917, end: 20060917
  32. SELBEX [Concomitant]
     Indication: GASTRITIS
     Dosage: TOTAL DAILY DOSE: 50 MG  UNIT DOSE: 50 MG
     Route: 048
     Dates: start: 20060924, end: 20060924
  33. SENNOSIDE [Concomitant]
     Indication: CONSTIPATION
     Dosage: TOTAL DAILY DOSE: 24 MG  UNIT DOSE: 12 MG
     Route: 048
     Dates: start: 20060822, end: 20060822
  34. POLARAMINE [Concomitant]
     Indication: PRURITUS
     Dosage: TOTAL DAILY DOSE: 2 MG  UNIT DOSE: 2 MG
     Route: 048
     Dates: start: 20060923, end: 20060923
  35. MOBIC [Concomitant]
     Indication: WOUND COMPLICATION
     Dosage: TOTAL DAILY DOSE: 10 MG  UNIT DOSE: 10 MG
     Route: 048
     Dates: start: 20060824, end: 20060824
  36. MOHRUS TAPE [Concomitant]
     Indication: WOUND COMPLICATION
     Route: 062
     Dates: start: 20060917
  37. LAXOBERON [Concomitant]
     Indication: CONSTIPATION
     Route: 062
     Dates: start: 20060902
  38. RINDERON-VG [Concomitant]
     Indication: RASH
     Route: 062
     Dates: start: 20060918
  39. ALBUMIN (HUMAN) [Concomitant]
     Indication: SHOCK
     Dosage: TOTAL DAILY DOSE: 100 ML  UNIT DOSE: 50 ML
     Route: 042
     Dates: start: 20060824, end: 20060824
  40. HUMULIN 70/30 [Concomitant]
     Indication: HYPERGLYCAEMIA
     Dosage: UNIT DOSE: 300 IU
     Route: 042
     Dates: start: 20060823, end: 20060824
  41. NAROPIN [Concomitant]
     Indication: WOUND COMPLICATION
     Dosage: TOTAL DAILY DOSE: 200 MG  UNIT DOSE: 200 MG
     Route: 042
     Dates: start: 20060824, end: 20060826
  42. AMINOTRIPA NO.1 [Concomitant]
     Indication: NUTRITIONAL SUPPORT
     Dosage: TOTAL DAILY DOSE: 1700 ML  UNIT DOSE: 850 ML
     Route: 042
     Dates: start: 20060824, end: 20060825
  43. AMINOTRIPA NO.2 [Concomitant]
     Indication: NUTRITIONAL SUPPORT
     Dosage: TOTAL DAILY DOSE: 1800 ML  UNIT DOSE: 900 ML
     Route: 042
     Dates: start: 20060825, end: 20060830
  44. AMINOFLUID [Concomitant]
     Indication: FLUID REPLACEMENT
     Dosage: TOTAL DAILY DOSE: 500 ML  UNIT DOSE: 500 ML
     Route: 042
     Dates: start: 20060925, end: 20060926
  45. OMEPRAL [Concomitant]
     Indication: PROPHYLAXIS AGAINST GASTROINTESTINAL ULCER
     Dosage: TOTAL DAILY DOSE: 40 MG  UNIT DOSE: 20 MG
     Route: 042
     Dates: start: 20060824, end: 20060830
  46. CATACLOT [Concomitant]
     Indication: CEREBRAL INFARCTION
     Dosage: TOTAL DAILY DOSE: 80 MG  UNIT DOSE: 20 MG
     Route: 042
     Dates: start: 20060824, end: 20060824
  47. SOLU-MEDROL [Concomitant]
     Indication: ASTHMA
     Dosage: TOTAL DAILY DOSE: 125 MG  UNIT DOSE: 125 MG
     Route: 042
     Dates: start: 20060920, end: 20060921
  48. SOLDEM 3A [Concomitant]
     Indication: FLUID REPLACEMENT
     Dosage: TOTAL DAILY DOSE: 1000 ML  UNIT DOSE: 500 ML
     Route: 042
     Dates: start: 20060823, end: 20060823
  49. MULTIVITAMIN ADDITIVE [Concomitant]
     Route: 042
     Dates: start: 20060824, end: 20060830
  50. NOVO HEPARIN [Concomitant]
     Indication: TRANSFUSION
     Route: 042
     Dates: start: 20060824, end: 20060827
  51. PASIL [Concomitant]
     Indication: INFECTION
     Dosage: TOTAL DAILY DOSE: 1000 MG  UNIT DOSE: 500 MG
     Route: 042
     Dates: start: 20060920, end: 20060920
  52. PANSPORIN [Concomitant]
     Indication: INFECTION PROPHYLAXIS
     Dosage: TOTAL DAILY DOSE: 1 G  UNIT DOSE: 1 G
     Route: 042
     Dates: start: 20060824, end: 20060826
  53. FINIBAX [Concomitant]
     Indication: INFECTION
     Dosage: TOTAL DAILY DOSE: 0.5 G  UNIT DOSE: 0.25 G
     Route: 042
     Dates: start: 20060919, end: 20060920
  54. PERDIPINE [Concomitant]
     Indication: HYPERTENSION
     Route: 042
     Dates: start: 20060824, end: 20060824
  55. LOW-MOLECULAR DEXTRAN [Concomitant]
     Indication: FLUID REPLACEMENT
     Dosage: TOTAL DAILY DOSE: 250 ML  UNIT DOSE: 250 ML
     Route: 042
     Dates: start: 20060824, end: 20060825
  56. BISOLVON [Concomitant]
     Indication: SPUTUM RETENTION
     Route: 042
     Dates: start: 20060824, end: 20060824
  57. BISOLVON [Concomitant]
     Route: 042
     Dates: start: 20060829, end: 20060904

REACTIONS (15)
  - CARDIAC ARREST [None]
  - CEREBRAL INFARCTION [None]
  - GRANULOCYTOPENIA [None]
  - HAEMODIALYSIS [None]
  - HEPATITIS [None]
  - LIVER DISORDER [None]
  - NO THERAPEUTIC RESPONSE [None]
  - PLEURAL EFFUSION [None]
  - PLEURISY [None]
  - PNEUMONIA [None]
  - POST PROCEDURAL COMPLICATION [None]
  - SEPSIS [None]
  - SHOCK [None]
  - STAPHYLOCOCCAL SEPSIS [None]
  - STEVENS-JOHNSON SYNDROME [None]
